FAERS Safety Report 4298013-6 (Version None)
Quarter: 2004Q1

REPORT INFORMATION
  Report Type: 
  Country: None (occurrence: None)
  Receive Date: 20040218
  Receipt Date: 20011023
  Transmission Date: 20041129
  Serious: Yes (Other)
  Sender: FDA-Public Use
  Company Number: US-BRISTOL-MYERS SQUIBB COMPANY-11054673

PATIENT
  Age: 28 Year
  Sex: Female

DRUGS (3)
  1. STADOL [Suspect]
     Indication: MIGRAINE
     Dosage: 2-3 BOTTLES PER WEEK
     Route: 045
     Dates: start: 19980101
  2. STADOL [Suspect]
     Indication: INSOMNIA
     Dosage: 2-3 BOTTLES PER WEEK
     Route: 045
     Dates: start: 19980101
  3. STADOL [Suspect]
     Indication: MIGRAINE
     Dosage: ^HAVE HAD A FEW INJECTIONS^

REACTIONS (3)
  - DEPENDENCE [None]
  - DRUG EXPOSURE DURING PREGNANCY [None]
  - DRUG EXPOSURE VIA BREAST MILK [None]
